FAERS Safety Report 18685486 (Version 1)
Quarter: 2020Q4

REPORT INFORMATION
  Report Type: Spontaneous
  Country: US (occurrence: US)
  Receive Date: 20201230
  Receipt Date: 20201230
  Transmission Date: 20210114
  Serious: Yes (Hospitalization, Other)
  Sender: FDA-Public Use
  Company Number: US-PURDUE-USA-2020-0159188

PATIENT
  Age: 1 Day
  Sex: Male

DRUGS (3)
  1. GUANFACINE. [Concomitant]
     Active Substance: GUANFACINE
     Indication: PRODUCT USED FOR UNKNOWN INDICATION
     Dosage: 3 MG, UNK
     Route: 065
     Dates: start: 20190121
  2. HYDROCODONE BITARTRATE AND ACETAMINOPHEN [Suspect]
     Active Substance: ACETAMINOPHEN\HYDROCODONE BITARTRATE
     Indication: PRODUCT USED FOR UNKNOWN INDICATION
     Dosage: UNK
     Route: 064
  3. NORCO [Suspect]
     Active Substance: ACETAMINOPHEN\HYDROCODONE BITARTRATE
     Indication: PRODUCT USED FOR UNKNOWN INDICATION
     Dosage: UNK
     Route: 064

REACTIONS (12)
  - Learning disability [Unknown]
  - Drug withdrawal syndrome neonatal [Unknown]
  - Myopia [Unknown]
  - Strabismus [Unknown]
  - Cough [Unknown]
  - Eye disorder [Unknown]
  - Attention deficit hyperactivity disorder [Unknown]
  - Foetal exposure during delivery [Recovered/Resolved]
  - Obesity [Unknown]
  - Bronchiolitis [Unknown]
  - Pneumonia [Unknown]
  - Radial head dislocation [Unknown]

NARRATIVE: CASE EVENT DATE: 20081006
